FAERS Safety Report 8559523-6 (Version None)
Quarter: 2012Q3

REPORT INFORMATION
  Report Type: 
  Country: None (occurrence: None)
  Receive Date: 20120802
  Receipt Date: 20120725
  Transmission Date: 20120928
  Serious: Yes (Hospitalization)
  Sender: FDA-Public Use
  Company Number: GB-BAYER-2011-047442

PATIENT
  Age: 64 Year
  Sex: Female
  Weight: 57.9 kg

DRUGS (14)
  1. NEXAVAR [Suspect]
     Indication: NEUROENDOCRINE CARCINOMA
     Dosage: 400 MG, QD
     Route: 048
     Dates: start: 20060521, end: 20110504
  2. ZOPICLONE [Concomitant]
     Indication: INSOMNIA
     Dosage: 7.5 MG TOTAL DAILY DOSE
     Route: 048
     Dates: start: 20060105
  3. LORATADINE [Concomitant]
     Indication: RHINITIS ALLERGIC
     Dosage: 10 MG PRN QD
     Route: 048
     Dates: start: 20090521
  4. ORAMORPH SR [Concomitant]
     Indication: ANALGESIC THERAPY
     Dosage: STRENGTH: 10MG/5ML , DOSE:10 MG PRN
     Route: 048
     Dates: start: 20100803
  5. TRAMADOL HYDROCHLORIDE [Concomitant]
     Indication: ANALGESIC THERAPY
     Dosage: STRENGTH: 10MG/5ML, DOSE: 50-100 MG PRN
     Route: 048
     Dates: start: 20100621
  6. OMEPRAZOLE [Concomitant]
     Indication: DUODENAL ULCER
     Dosage: 80 MG TOTAL DAILY DOSE
     Route: 048
     Dates: start: 20100616
  7. ZOPICLONE [Concomitant]
     Indication: FATIGUE
  8. LOPERAMIDE [Concomitant]
     Indication: DIARRHOEA
     Dosage: 2 MG PRN
     Route: 048
     Dates: start: 20061209
  9. WIND EZE [Concomitant]
     Indication: ERUCTATION
     Dosage: 125 MG PRN (TOTAL DAILY DOSE)
     Route: 048
     Dates: start: 20110219
  10. NEXAVAR [Suspect]
     Dosage: 200 MG, QD
     Route: 048
     Dates: start: 20110505
  11. ACETAMINOPHEN [Concomitant]
     Indication: PAIN
     Dosage: ^15 QDS^, PRN
     Route: 048
     Dates: start: 20060202
  12. PEPPERMINT OIL [Concomitant]
     Indication: ABDOMINAL PAIN
     Dosage: 1-2 CAPSULES PRN
     Route: 048
     Dates: start: 20100810
  13. ACETAMINOPHEN [Concomitant]
     Indication: HEADACHE
  14. CODEINE PHOSPHATE [Concomitant]
     Indication: ANALGESIC THERAPY
     Dosage: 30-60 MG PRN (TOTAL DAILY DOSE)
     Route: 048
     Dates: start: 20090228

REACTIONS (1)
  - DUODENAL OBSTRUCTION [None]
